FAERS Safety Report 9126974 (Version 1)
Quarter: 2013Q1

REPORT INFORMATION
  Report Type: Spontaneous
  Country: ES (occurrence: ES)
  Receive Date: 20130228
  Receipt Date: 20130228
  Transmission Date: 20140127
  Serious: Yes (Other)
  Sender: FDA-Public Use
  Company Number: PHHY2013ES018511

PATIENT
  Age: 31 Year
  Sex: Male

DRUGS (2)
  1. CLOZAPINE [Suspect]
     Indication: SCHIZOPHRENIA, PARANOID TYPE
     Dosage: 150 MG, PER DAY
  2. VALPROATE [Concomitant]
     Dosage: 1000 MG, PER DAY

REACTIONS (4)
  - Hyperprolactinaemia [Recovering/Resolving]
  - Gynaecomastia [Recovering/Resolving]
  - Erectile dysfunction [Not Recovered/Not Resolved]
  - Ejaculation disorder [Not Recovered/Not Resolved]
